FAERS Safety Report 6032357-2 (Version None)
Quarter: 2009Q1

REPORT INFORMATION
  Report Type: 
  Country: None (occurrence: None)
  Receive Date: 20090107
  Receipt Date: 20081224
  Transmission Date: 20090719
  Serious: Yes (Other)
  Sender: FDA-Public Use
  Company Number: 236518K06USA

PATIENT
  Age: 75 Year
  Sex: Female

DRUGS (3)
  1. REBIF [Suspect]
     Indication: MULTIPLE SCLEROSIS
     Dosage: 44 MCG; 44 MCG, 1 IN 1 WEEKS, SUBCUTANEOUS; 44 MCG, SUBCUTANEOUS
     Route: 058
     Dates: start: 20080101, end: 20081101
  2. REBIF [Suspect]
     Indication: MULTIPLE SCLEROSIS
     Dosage: 44 MCG; 44 MCG, 1 IN 1 WEEKS, SUBCUTANEOUS; 44 MCG, SUBCUTANEOUS
     Route: 058
     Dates: start: 20081101, end: 20081217
  3. REBIF [Suspect]
     Indication: MULTIPLE SCLEROSIS
     Dosage: 44 MCG; 44 MCG, 1 IN 1 WEEKS, SUBCUTANEOUS; 44 MCG, SUBCUTANEOUS
     Route: 058
     Dates: start: 20061004

REACTIONS (1)
  - HEPATIC CIRRHOSIS [None]
